FAERS Safety Report 13498870 (Version 1)
Quarter: 2017Q2

REPORT INFORMATION
  Report Type: Spontaneous
  Country: US (occurrence: US)
  Receive Date: 20170430
  Receipt Date: 20170430
  Transmission Date: 20170830
  Serious: Yes (Life-Threatening)
  Sender: FDA-Public Use
  Company Number: None

PATIENT
  Age: 54 Year
  Sex: Female
  Weight: 54 kg

DRUGS (8)
  1. B6/B12/FOLATE [Concomitant]
  2. TRIAMCINOLONE OINTMENT [Concomitant]
  3. QVAR [Concomitant]
     Active Substance: BECLOMETHASONE DIPROPIONATE
  4. DOXYLAMINE MELATONIN [Concomitant]
  5. INDOMETHACIN. [Concomitant]
     Active Substance: INDOMETHACIN
  6. HYDROXYCHOROQUINE 200 MG [Suspect]
     Active Substance: HYDROXYCHLOROQUINE
     Indication: AUTOIMMUNE DISORDER
     Dosage: ?          QUANTITY:90 TABLET(S); DALILY ORAL?
     Route: 048
     Dates: start: 20170419, end: 20170424
  7. DOXEPIN [Concomitant]
     Active Substance: DOXEPIN
  8. KETOTIFEN FUMARATE. [Concomitant]
     Active Substance: KETOTIFEN FUMARATE

REACTIONS (14)
  - Balance disorder [None]
  - Blood creatinine increased [None]
  - Haemoglobin decreased [None]
  - Back pain [None]
  - Headache [None]
  - Affect lability [None]
  - Influenza like illness [None]
  - Dizziness [None]
  - Pyrexia [None]
  - Heart rate increased [None]
  - Visual impairment [None]
  - Neck pain [None]
  - Pruritus [None]
  - Blood urine present [None]

NARRATIVE: CASE EVENT DATE: 20170425
